FAERS Safety Report 7440622-7 (Version None)
Quarter: 2011Q2

REPORT INFORMATION
  Report Type: 
  Country: None (occurrence: None)
  Receive Date: 20110427
  Receipt Date: 20110419
  Transmission Date: 20111010
  Serious: Yes (Other)
  Sender: FDA-Public Use
  Company Number: B0715380A

PATIENT
  Sex: Male

DRUGS (5)
  1. ZYBAN [Suspect]
     Dosage: 150MG TWICE PER DAY
     Route: 048
     Dates: start: 20110126, end: 20110310
  2. RAMIPRIL [Concomitant]
     Dosage: 5MG PER DAY
     Route: 048
     Dates: start: 20100922
  3. MELOXICAM [Concomitant]
     Dosage: 7.5MG TWICE PER DAY
     Route: 048
     Dates: start: 19971008
  4. SIMVASTATIN [Concomitant]
     Dosage: 20MG PER DAY
     Route: 048
     Dates: start: 20100922
  5. DIAZEPAM [Concomitant]
     Dosage: 5MG PER DAY
     Route: 048
     Dates: start: 19970707

REACTIONS (2)
  - PSORIASIS [None]
  - OEDEMA PERIPHERAL [None]
